FAERS Safety Report 14670700 (Version 3)
Quarter: 2018Q1

REPORT INFORMATION
  Report Type: Report from Study
  Country: CA (occurrence: CA)
  Receive Date: 20180322
  Receipt Date: 20180329
  Transmission Date: 20180509
  Serious: Yes (Hospitalization)
  Sender: FDA-Public Use
  Company Number: CA-SA-2018SA073909

PATIENT
  Age: 71 Year
  Sex: Female
  Weight: 67 kg

DRUGS (7)
  1. LIPITOR [Concomitant]
     Active Substance: ATORVASTATIN CALCIUM
     Route: 048
  2. VITAMIN D3 [Concomitant]
     Active Substance: CHOLECALCIFEROL
     Route: 048
  3. PANTOLOC [Concomitant]
     Active Substance: PANTOPRAZOLE SODIUM
     Route: 048
  4. SENOKOT [Concomitant]
     Active Substance: SENNOSIDES
     Route: 048
  5. ASA [Concomitant]
     Active Substance: ASPIRIN
     Route: 048
  6. COVERSYL [Concomitant]
     Active Substance: PERINDOPRIL
     Route: 048
  7. PLAVIX [Suspect]
     Active Substance: CLOPIDOGREL BISULFATE
     Route: 048

REACTIONS (1)
  - Pleural effusion [Recovered/Resolved]

NARRATIVE: CASE EVENT DATE: 20180215
